FAERS Safety Report 5481027-8 (Version None)
Quarter: 2007Q4

REPORT INFORMATION
  Report Type: 
  Country: None (occurrence: None)
  Receive Date: 20071009
  Receipt Date: 20070927
  Transmission Date: 20080405
  Serious: Yes (Other)
  Sender: FDA-Public Use
  Company Number: US-PFIZER INC-2007081339

PATIENT
  Sex: Male
  Weight: 56.818 kg

DRUGS (6)
  1. LYRICA [Suspect]
     Indication: HIV PERIPHERAL NEUROPATHY
     Dosage: DAILY DOSE:150MG
  2. TRUVADA [Concomitant]
     Indication: ACQUIRED IMMUNODEFICIENCY SYNDROME
  3. NORVIR [Concomitant]
     Indication: ACQUIRED IMMUNODEFICIENCY SYNDROME
  4. REYATAZ [Concomitant]
     Indication: ACQUIRED IMMUNODEFICIENCY SYNDROME
  5. OXYCODONE HCL [Concomitant]
     Indication: PAIN
  6. VITAMIN CAP [Concomitant]

REACTIONS (8)
  - CONFUSIONAL STATE [None]
  - DYSARTHRIA [None]
  - EUPHORIC MOOD [None]
  - IMPAIRED DRIVING ABILITY [None]
  - INSOMNIA [None]
  - MENTAL STATUS CHANGES [None]
  - PAIN [None]
  - SUICIDAL IDEATION [None]
